FAERS Safety Report 5048027-3 (Version None)
Quarter: 2006Q3

REPORT INFORMATION
  Report Type: 
  Country: None (occurrence: None)
  Receive Date: 20060710
  Receipt Date: 20060710
  Transmission Date: 20061208
  Serious: Yes (Hospitalization)
  Sender: FDA-Public Use
  Company Number: None

PATIENT
  Age: 51 Year
  Sex: Male
  Weight: 76 kg

DRUGS (3)
  1. CETUXIMAB      2 MG/ML      BRISTOL-MYERS SQUIBB [Suspect]
     Indication: PANCREATIC CARCINOMA
     Dosage: 400 MG/M2    WEEKLY    IV DRIP
     Route: 041
     Dates: start: 20060419, end: 20060419
  2. ALLOGENEIC PANCREATIC CANCER VACCINE [Concomitant]
  3. CYCLOPHOSPHAMIDE [Concomitant]

REACTIONS (13)
  - ABDOMINAL PAIN [None]
  - ALANINE AMINOTRANSFERASE INCREASED [None]
  - ASCITES [None]
  - ASPARTATE AMINOTRANSFERASE INCREASED [None]
  - BLOOD ALKALINE PHOSPHATASE INCREASED [None]
  - BLOOD BILIRUBIN INCREASED [None]
  - BODY TEMPERATURE INCREASED [None]
  - CHEST PAIN [None]
  - DEEP VEIN THROMBOSIS [None]
  - DISEASE PROGRESSION [None]
  - JAUNDICE [None]
  - MALAISE [None]
  - PULMONARY EMBOLISM [None]
